FAERS Safety Report 9252712 (Version 1)
Quarter: 2013Q1

REPORT INFORMATION
  Report Type: Spontaneous
  Country: US (occurrence: None)
  Receive Date: 20130305
  Receipt Date: 20130305
  Transmission Date: 20140127
  Serious: Yes (Hospitalization)
  Sender: FDA-Public Use
  Company Number: 163-21880-12082144

PATIENT
  Age: 64 Year
  Sex: Male

DRUGS (13)
  1. REVLIMID [Suspect]
     Indication: PLASMA CELL MYELOMA
     Dosage: 21 IN 28 D
     Route: 048
     Dates: start: 20110111, end: 20120802
  2. COUMADIN (WARFARIN S OSDIUM) (TABLETS) [Concomitant]
  3. AMOXICILLIN (AMOXICILLIN) (CAPSULES) [Concomitant]
  4. ASPIRIN (ACETYLSALICYLIC ACID) (TABLETS) [Concomitant]
  5. SIMVASTATIN [Concomitant]
  6. ZOMETA (ZOLEDRONIC ACID) (INJECTION) [Concomitant]
  7. ZOCOR (SIMVASTATIN) (TABLETS) [Concomitant]
  8. ONGLYZA (SAXAGLIPTIN HYDROCHLORIDE) (TABLETS) [Concomitant]
  9. COMPAZINE (PROCHLORPERAZINE EDISYLATE) (TABLETS) [Concomitant]
  10. COSOPT (COSOPT) (SOLUTIONS) [Concomitant]
  11. BRIMONIDINE (BRIMONIDINE) (SOLUTION) [Concomitant]
  12. VELCADE (BORTEZOMIB) (INJECTION) [Concomitant]
  13. HCTZ/TRIAMT (DYAZIDE) (TABLETS) [Concomitant]

REACTIONS (1)
  - Pneumonia [None]
